FAERS Safety Report 16311259 (Version 3)
Quarter: 2022Q3

REPORT INFORMATION
  Report Type: Spontaneous
  Country: US (occurrence: None)
  Receive Date: 20190514
  Receipt Date: 20220808
  Transmission Date: 20221027
  Serious: Yes (Other)
  Sender: FDA-Public Use
  Company Number: 2019SE66425

PATIENT
  Age: 13051 Day
  Sex: Female
  Weight: 125.2 kg

DRUGS (70)
  1. PRILOSEC [Suspect]
     Active Substance: OMEPRAZOLE MAGNESIUM
     Indication: Gastrooesophageal reflux disease
     Route: 048
     Dates: start: 201312, end: 201704
  2. PRILOSEC [Suspect]
     Active Substance: OMEPRAZOLE MAGNESIUM
     Indication: Gastrooesophageal reflux disease
     Route: 048
     Dates: start: 201704
  3. PRILOSEC [Suspect]
     Active Substance: OMEPRAZOLE MAGNESIUM
     Indication: Gastrooesophageal reflux disease
     Route: 065
  4. PRILOSEC [Suspect]
     Active Substance: OMEPRAZOLE MAGNESIUM
     Indication: Gastrooesophageal reflux disease
     Route: 048
     Dates: start: 201312, end: 201510
  5. PRILOSEC [Suspect]
     Active Substance: OMEPRAZOLE MAGNESIUM
     Indication: Gastrooesophageal reflux disease
     Route: 048
     Dates: start: 201602, end: 201704
  6. PRILOSEC [Suspect]
     Active Substance: OMEPRAZOLE MAGNESIUM
     Indication: Gastrooesophageal reflux disease
     Route: 048
     Dates: start: 201704, end: 2021
  7. PREVACID [Suspect]
     Active Substance: LANSOPRAZOLE
     Indication: Gastrooesophageal reflux disease
     Route: 065
     Dates: start: 200701, end: 200910
  8. PREVACID [Suspect]
     Active Substance: LANSOPRAZOLE
     Indication: Gastrooesophageal reflux disease
     Dosage: GENERIC
     Route: 065
     Dates: start: 200912, end: 201311
  9. PREVACID [Suspect]
     Active Substance: LANSOPRAZOLE
     Indication: Gastrooesophageal reflux disease
     Dosage: GENERIC
     Route: 065
     Dates: start: 200912, end: 201004
  10. PREVACID [Suspect]
     Active Substance: LANSOPRAZOLE
     Indication: Gastrooesophageal reflux disease
     Dosage: GENERIC
     Route: 065
     Dates: start: 201006, end: 201203
  11. PREVACID [Suspect]
     Active Substance: LANSOPRAZOLE
     Indication: Gastrooesophageal reflux disease
     Dosage: GENERIC
     Route: 065
     Dates: start: 201205, end: 201208
  12. TIZANIDINE [Concomitant]
     Active Substance: TIZANIDINE
  13. HYDROCODONE BITARTRATE AND ACETAMINOPHEN [Concomitant]
     Active Substance: ACETAMINOPHEN\HYDROCODONE BITARTRATE
  14. KLOR-CON [Concomitant]
     Active Substance: POTASSIUM CHLORIDE
     Dates: start: 20050119
  15. ALLOPURINOL [Concomitant]
     Active Substance: ALLOPURINOL
  16. LOSARTAN [Concomitant]
     Active Substance: LOSARTAN
  17. ASPIRIN [Concomitant]
     Active Substance: ASPIRIN
  18. BENADRYL [Concomitant]
     Active Substance: DIPHENHYDRAMINE HYDROCHLORIDE
  19. ZANTAC [Concomitant]
     Active Substance: RANITIDINE HYDROCHLORIDE
  20. TORSEMIDE [Concomitant]
     Active Substance: TORSEMIDE
  21. DIOVAN [Concomitant]
     Active Substance: VALSARTAN
  22. LIPITOR [Concomitant]
     Active Substance: ATORVASTATIN CALCIUM
     Dates: start: 20041103
  23. FUROSEMIDE [Concomitant]
     Active Substance: FUROSEMIDE
  24. DOXYCYCLINE [Concomitant]
     Active Substance: DOXYCYCLINE
  25. LEVAQUIN [Concomitant]
     Active Substance: LEVOFLOXACIN
  26. ACYCLOVIR [Concomitant]
     Active Substance: ACYCLOVIR
  27. INDOMETHACIN [Concomitant]
     Active Substance: INDOMETHACIN
  28. AZITHROMYCIN [Concomitant]
     Active Substance: AZITHROMYCIN
  29. CIPROFLOXACIN [Concomitant]
     Active Substance: CIPROFLOXACIN
  30. SIMVASTATIN [Concomitant]
     Active Substance: SIMVASTATIN
  31. METOPROLOL [Concomitant]
     Active Substance: METOPROLOL
  32. NITROFURANTOIN [Concomitant]
     Active Substance: NITROFURANTOIN
  33. PROMETHAZINE [Concomitant]
     Active Substance: PROMETHAZINE HYDROCHLORIDE
  34. HYDRALAZINE [Concomitant]
     Active Substance: HYDRALAZINE HYDROCHLORIDE
  35. CALCITRIOL [Concomitant]
     Active Substance: CALCITRIOL
  36. FLUCONAZOLE [Concomitant]
     Active Substance: FLUCONAZOLE
  37. ACETAMINOPHEN\OXYCODONE HYDROCHLORIDE [Concomitant]
     Active Substance: ACETAMINOPHEN\OXYCODONE HYDROCHLORIDE
  38. CARVEDILOL [Concomitant]
     Active Substance: CARVEDILOL
  39. PREDNISONE [Concomitant]
     Active Substance: PREDNISONE
     Dates: start: 20041101
  40. BACLOFEN [Concomitant]
     Active Substance: BACLOFEN
  41. TRIAMCINOLONE [Concomitant]
     Active Substance: TRIAMCINOLONE
  42. PANLOR [Concomitant]
     Active Substance: ACETAMINOPHEN\CAFFEINE\DIHYDROCODEINE BITARTRATE
  43. VIBRAMYCIN [Concomitant]
     Active Substance: DOXYCYCLINE
  44. LISINOPRIL [Concomitant]
     Active Substance: LISINOPRIL
  45. NYSTATIN [Concomitant]
     Active Substance: NYSTATIN
     Dates: start: 20040806
  46. LYSINE [Concomitant]
     Active Substance: LYSINE
     Dates: start: 20050119
  47. VITAMIN D [Concomitant]
     Active Substance: VITAMIN D NOS
     Dates: start: 20050119
  48. NORVASC [Concomitant]
     Active Substance: AMLODIPINE BESYLATE
     Dates: start: 20050119
  49. PLAQUENIL [Concomitant]
     Active Substance: HYDROXYCHLOROQUINE SULFATE
     Dates: start: 20050119
  50. GABAPENTIN [Concomitant]
     Active Substance: GABAPENTIN
     Dates: start: 20050119
  51. SULFAMETHOXAZOLE [Concomitant]
     Active Substance: SULFAMETHOXAZOLE
  52. VITAMIN B12 [Concomitant]
     Active Substance: CYANOCOBALAMIN
     Dates: start: 20050119
  53. PHENYLEPHRINE [Concomitant]
     Active Substance: PHENYLEPHRINE HYDROCHLORIDE
     Dates: start: 20050119
  54. CEFAZOLIN SODIUM [Concomitant]
     Active Substance: CEFAZOLIN SODIUM
     Dates: start: 20050119
  55. MIDAZOLAM [Concomitant]
     Active Substance: MIDAZOLAM
     Dates: start: 20050119
  56. MUCINEX [Concomitant]
     Active Substance: GUAIFENESIN
     Dates: start: 20050119
  57. NOVOLOG [Concomitant]
     Active Substance: INSULIN ASPART
     Dates: start: 20050119
  58. COLCHICINE [Concomitant]
     Active Substance: COLCHICINE
     Dates: start: 20050119
  59. SODIUM BICARBONATE [Concomitant]
     Active Substance: SODIUM BICARBONATE
     Dates: start: 20050119
  60. ZOCOR [Concomitant]
     Active Substance: SIMVASTATIN
     Dates: start: 20050119
  61. CELLCEPT [Concomitant]
     Active Substance: MYCOPHENOLATE MOFETIL
     Dates: start: 20050119
  62. VASOTEC [Concomitant]
     Active Substance: ENALAPRIL MALEATE
     Dates: start: 20050119
  63. LABETALOL [Concomitant]
     Active Substance: LABETALOL\LABETALOL HYDROCHLORIDE
     Dates: start: 20050119
  64. HEPARIN [Concomitant]
     Active Substance: HEPARIN SODIUM
     Dates: start: 20050119
  65. LEVEMIR [Concomitant]
     Active Substance: INSULIN DETEMIR
     Dates: start: 20050119
  66. OXYCODONE [Concomitant]
     Active Substance: OXYCODONE
     Dates: start: 20050119
  67. VALACYCLOVIR HYDROCHLORIDE [Concomitant]
     Active Substance: VALACYCLOVIR HYDROCHLORIDE
     Dates: start: 20050119
  68. DOCUSATE [Concomitant]
     Active Substance: DOCUSATE
     Dates: start: 20050119
  69. HYDROXYCHLOROQUINE [Concomitant]
     Active Substance: HYDROXYCHLOROQUINE
     Dates: start: 20050119
  70. SCOPOLAMINE [Concomitant]
     Active Substance: SCOPOLAMINE
     Dates: start: 20050119

REACTIONS (6)
  - Chronic kidney disease [Not Recovered/Not Resolved]
  - Renal failure [Unknown]
  - End stage renal disease [Unknown]
  - Acute kidney injury [Unknown]
  - Nephrogenic anaemia [Unknown]
  - Renal tubular acidosis [Unknown]

NARRATIVE: CASE EVENT DATE: 20121018
